FAERS Safety Report 6000910-8 (Version None)
Quarter: 2008Q4

REPORT INFORMATION
  Report Type: 
  Country: None (occurrence: None)
  Receive Date: 20081215
  Receipt Date: 20081203
  Transmission Date: 20090506
  Serious: Yes (Hospitalization)
  Sender: FDA-Public Use
  Company Number: JP-SANOFI-SYNTHELABO-F01200801809

PATIENT
  Sex: Male

DRUGS (4)
  1. MEVALOTIN [Concomitant]
     Indication: HYPERLIPIDAEMIA
     Dosage: 10 MG
     Route: 048
     Dates: start: 20030731
  2. DIOVAN [Concomitant]
     Indication: HYPERTENSION
     Dosage: 160 MG
     Route: 048
     Dates: start: 20060405
  3. ATELEC [Concomitant]
     Indication: HYPERTENSION
     Dosage: 10 MG
     Route: 048
     Dates: start: 20060203
  4. CLOPIDOGREL [Suspect]
     Dosage: 50 MG
     Route: 048
     Dates: start: 20070619

REACTIONS (2)
  - ENTEROCOLITIS [None]
  - RHABDOMYOLYSIS [None]
